FAERS Safety Report 4879473-6 (Version None)
Quarter: 2005Q4

REPORT INFORMATION
  Report Type: 
  Country: None (occurrence: None)
  Receive Date: 20051209
  Receipt Date: 20050930
  Transmission Date: 20060501
  Serious: Yes (Death)
  Sender: FDA-Public Use
  Company Number: USA-2005-0021385

PATIENT
  Age: 53 Year
  Sex: Male
  Weight: 70.7 kg

DRUGS (2)
  1. OXYCONTIN [Suspect]
     Indication: ARTHRALGIA
     Dosage: 20 MG, QID, UNKNOWN
     Route: 065
  2. VALIUM [Concomitant]

REACTIONS (1)
  - INTENTIONAL OVERDOSE [None]
